FAERS Safety Report 20322257 (Version 1)
Quarter: 2022Q1

REPORT INFORMATION
  Report Type: Spontaneous
  Country: US (occurrence: US)
  Receive Date: 20220111
  Receipt Date: 20220111
  Transmission Date: 20220423
  Serious: Yes (Other)
  Sender: FDA-Public Use
  Company Number: US-MYLANLABS-2022M1002292

PATIENT
  Age: 64 Year
  Sex: Male

DRUGS (14)
  1. TRASTUZUMAB [Suspect]
     Active Substance: TRASTUZUMAB
     Indication: HER2 positive salivary gland cancer
     Dosage: 8 MILLIGRAM/KILOGRAM, CYCLE, LOADING DOSE
     Route: 065
  2. TRASTUZUMAB [Suspect]
     Active Substance: TRASTUZUMAB
     Indication: Metastatic neoplasm
     Dosage: 6 MILLIGRAM/KILOGRAM, Q3W
     Route: 065
  3. ALPELISIB [Concomitant]
     Active Substance: ALPELISIB
     Indication: HER2 positive salivary gland cancer
     Dosage: 300 MILLIGRAM
     Route: 048
  4. ALPELISIB [Concomitant]
     Active Substance: ALPELISIB
     Indication: Metastatic neoplasm
     Dosage: UNK, DOSE DECREASED
     Route: 048
  5. PACLITAXEL [Concomitant]
     Active Substance: PACLITAXEL
     Indication: HER2 positive salivary gland cancer
     Dosage: 175 MILLIGRAM/SQ. METER, CYCLE
     Route: 042
  6. PACLITAXEL [Concomitant]
     Active Substance: PACLITAXEL
     Indication: Metastatic neoplasm
  7. CARBOPLATIN [Concomitant]
     Active Substance: CARBOPLATIN
     Indication: HER2 positive salivary gland cancer
     Dosage: UNK UNK, CYCLE, AUC5
     Route: 065
  8. CARBOPLATIN [Concomitant]
     Active Substance: CARBOPLATIN
     Indication: Metastatic neoplasm
  9. ZOLEDRONIC ACID [Concomitant]
     Active Substance: ZOLEDRONIC ACID
     Indication: HER2 positive salivary gland cancer
     Dosage: UNK UNK, CYCLE
     Route: 065
  10. ZOLEDRONIC ACID [Concomitant]
     Active Substance: ZOLEDRONIC ACID
     Indication: Metastatic neoplasm
  11. CALCIUM\VITAMIN D [Concomitant]
     Active Substance: CALCIUM\VITAMIN D
     Indication: HER2 positive salivary gland cancer
     Dosage: UNK UNK, CYCLE
     Route: 065
  12. CALCIUM\VITAMIN D [Concomitant]
     Active Substance: CALCIUM\VITAMIN D
     Indication: Metastatic neoplasm
  13. BICALUTAMIDE [Concomitant]
     Active Substance: BICALUTAMIDE
     Indication: HER2 positive salivary gland cancer
     Dosage: 50 MILLIGRAM
     Route: 048
  14. BICALUTAMIDE [Concomitant]
     Active Substance: BICALUTAMIDE
     Indication: Metastatic neoplasm

REACTIONS (1)
  - Drug resistance [Unknown]
